FAERS Safety Report 7078107 (Version 6)
Quarter: 2012Q4

REPORT INFORMATION
  Report Type: 
  Country: US (occurrence: US)
  Receive Date: 20090811
  Receipt Date: 20121205
  Transmission Date: 20130627
  Serious: Yes (Other)
  Sender: FDA-Public Use
  Company Number: US-JNJFOC-20090802398

PATIENT
  Sex: Male

DRUGS (4)
  1. RISPERDAL [Suspect]
     Indication: PARANOIA
     Route: 048
  2. RISPERDAL [Suspect]
     Indication: PSYCHOTIC DISORDER
     Route: 048
  3. SEROQUEL [Suspect]
     Indication: PARANOIA
     Route: 065
  4. SEROQUEL [Suspect]
     Indication: PSYCHOTIC DISORDER
     Route: 065

REACTIONS (2)
  - Diabetes mellitus [Unknown]
  - Tardive dyskinesia [Unknown]
